FAERS Safety Report 25590807 (Version 2)
Quarter: 2025Q3

REPORT INFORMATION
  Report Type: Spontaneous
  Country: JP (occurrence: JP)
  Receive Date: 20250722
  Receipt Date: 20250805
  Transmission Date: 20251020
  Serious: Yes (Hospitalization, Other)
  Sender: EXELIXIS
  Company Number: JP-TAKEDA-2025TJP007251

PATIENT
  Age: 7 Decade

DRUGS (1)
  1. CABOMETYX [Suspect]
     Active Substance: CABOZANTINIB S-MALATE
     Indication: Product used for unknown indication
     Route: 065

REACTIONS (5)
  - Cardiac failure [Unknown]
  - Tumour lysis syndrome [Unknown]
  - Hepatic cirrhosis [Unknown]
  - White blood cell count decreased [Unknown]
  - Platelet count decreased [Unknown]
